FAERS Safety Report 6965557-5 (Version None)
Quarter: 2010Q3

REPORT INFORMATION
  Report Type: 
  Country: None (occurrence: None)
  Receive Date: 20100903
  Receipt Date: 20100831
  Transmission Date: 20110219
  Serious: Yes (Death)
  Sender: FDA-Public Use
  Company Number: US-ELI_LILLY_AND_COMPANY-US201009000073

PATIENT
  Age: 30 Year
  Sex: Male

DRUGS (1)
  1. XIGRIS [Suspect]
     Indication: SEPSIS
     Dosage: 120 KG, OTHER (96 HOURS INFUSION)
     Route: 042
     Dates: start: 20100827, end: 20100830

REACTIONS (2)
  - HEPATIC FAILURE [None]
  - RENAL FAILURE [None]
